FAERS Safety Report 4613291-9 (Version None)
Quarter: 2005Q1

REPORT INFORMATION
  Report Type: 
  Country: None (occurrence: None)
  Receive Date: 20050315
  Receipt Date: 20050310
  Transmission Date: 20050727
  Serious: Yes (Life-Threatening)
  Sender: FDA-Public Use
  Company Number: THQ2005A00165

PATIENT
  Sex: Male

DRUGS (2)
  1. LANSOPRAZOLE [Suspect]
  2. LOSEC (OMEPRAZOLE) [Concomitant]

REACTIONS (1)
  - NO ADVERSE DRUG EFFECT [None]
